FAERS Safety Report 11392894 (Version 1)
Quarter: 2015Q3

REPORT INFORMATION
  Report Type: Spontaneous
  Country: GB (occurrence: GB)
  Receive Date: 20150818
  Receipt Date: 20150818
  Transmission Date: 20151125
  Serious: Yes (Other)
  Sender: FDA-Public Use
  Company Number: GB-PFIZER INC-2015270267

PATIENT
  Age: 44 Year
  Sex: Male

DRUGS (2)
  1. TEICOPLANIN [Concomitant]
     Active Substance: TEICOPLANIN
     Indication: INFECTION
     Dosage: 800 MG, UNK
     Route: 042
     Dates: start: 20150617, end: 20150621
  2. TAZOCIN [Suspect]
     Active Substance: PIPERACILLIN SODIUM\TAZOBACTAM SODIUM
     Indication: INFECTION
     Dosage: 4.5 G, UNK
     Route: 042
     Dates: start: 20150615, end: 20150622

REACTIONS (2)
  - Gamma-glutamyltransferase increased [Unknown]
  - Liver injury [Unknown]
